FAERS Safety Report 9780937 (Version 1)
Quarter: 2013Q4

REPORT INFORMATION
  Report Type: Spontaneous
  Country: US (occurrence: US)
  Receive Date: 20131224
  Receipt Date: 20131224
  Transmission Date: 20140711
  Serious: No
  Sender: FDA-Public Use
  Company Number: US-B.I. PHARMACEUTICALS,INC./RIDGEFIELD-2013-BI-41863BP

PATIENT
  Age: 44 Year
  Sex: Female
  Weight: 75 kg

DRUGS (3)
  1. COMBIVENT [Suspect]
     Dosage: STRENGTH: 20 MCG / 100 MCG;
     Route: 055
     Dates: start: 20131101
  2. SUBOXONE [Concomitant]
     Indication: DRUG DEPENDENCE
     Route: 048
  3. COMBIVENT CFC [Concomitant]
     Route: 055
     Dates: start: 2008, end: 20131031

REACTIONS (2)
  - Drug effect delayed [Not Recovered/Not Resolved]
  - Drug ineffective [Not Recovered/Not Resolved]
